FAERS Safety Report 4565436-7 (Version None)
Quarter: 2005Q1

REPORT INFORMATION
  Report Type: 
  Country: None (occurrence: None)
  Receive Date: 20050131
  Receipt Date: 20050118
  Transmission Date: 20050727
  Serious: Yes (Life-Threatening)
  Sender: FDA-Public Use
  Company Number: US-MERCK-0501USA02782

PATIENT
  Age: 50 Year
  Sex: Male

DRUGS (2)
  1. VIOXX [Suspect]
     Indication: SPONDYLITIS
     Route: 048
     Dates: end: 20010101
  2. VIOXX [Suspect]
     Indication: POST PROCEDURAL PAIN
     Route: 048
     Dates: end: 20010101

REACTIONS (6)
  - CHEST DISCOMFORT [None]
  - DRUG DEPENDENCE [None]
  - FACIAL PALSY [None]
  - HYPERTENSION [None]
  - HYPOAESTHESIA [None]
  - MUSCLE DISORDER [None]
